FAERS Safety Report 5115613-1 (Version None)
Quarter: 2006Q3

REPORT INFORMATION
  Report Type: 
  Country: None (occurrence: None)
  Receive Date: 20060927
  Receipt Date: 20060306
  Transmission Date: 20061208
  Serious: Yes (Life-Threatening)
  Sender: FDA-Public Use
  Company Number: JP-BAYER-200610348BYL

PATIENT
  Age: 74 Year
  Sex: Male

DRUGS (6)
  1. CIPROXAN-I.V. [Suspect]
     Indication: LUNG INFECTION PSEUDOMONAL
     Route: 041
     Dates: start: 20060304, end: 20060306
  2. OMEGACIN [Concomitant]
     Indication: PNEUMONIA
     Route: 041
     Dates: start: 20060227, end: 20060303
  3. INOVAN [Concomitant]
     Indication: SHOCK
     Route: 041
     Dates: start: 20060301, end: 20060318
  4. HEPARIN SODIUM [Concomitant]
     Route: 065
  5. LASIX [Concomitant]
     Indication: OEDEMA
     Route: 042
     Dates: start: 20060301, end: 20060305
  6. DIGILANOGEN C [Concomitant]
     Indication: CARDIAC FAILURE
     Route: 041
     Dates: start: 20060228, end: 20060302

REACTIONS (1)
  - HYPOGLYCAEMIA [None]
